FAERS Safety Report 9338593 (Version 3)
Quarter: 2013Q4

REPORT INFORMATION
  Report Type: Spontaneous
  Country: DE (occurrence: DE)
  Receive Date: 20130610
  Receipt Date: 20131210
  Transmission Date: 20140711
  Serious: Yes (Hospitalization, Other)
  Sender: FDA-Public Use
  Company Number: PHHY2013DE055916

PATIENT
  Sex: Male

DRUGS (2)
  1. IMATINIB [Suspect]
     Indication: CHRONIC MYELOID LEUKAEMIA
     Dosage: 400 MG, DAILY
     Route: 048
     Dates: start: 201204, end: 201308
  2. ASS [Concomitant]
     Indication: CEREBROVASCULAR ACCIDENT
     Dosage: 100 MG, DAILY
     Route: 048

REACTIONS (4)
  - Non-Hodgkin^s lymphoma [Not Recovered/Not Resolved]
  - Skin ulcer [Unknown]
  - Skin mass [Unknown]
  - Second primary malignancy [Unknown]
